FAERS Safety Report 10170987 (Version 1)
Quarter: 2014Q2

REPORT INFORMATION
  Report Type: Spontaneous
  Country: US (occurrence: None)
  Receive Date: 20140513
  Receipt Date: 20140513
  Transmission Date: 20141212
  Serious: Yes (Death)
  Sender: FDA-Public Use
  Company Number: None

PATIENT
  Age: 80 Year
  Sex: Male

DRUGS (16)
  1. ZYTIGA 250 MG JAHSSEN BIOTECH [Suspect]
     Route: 048
     Dates: start: 20140212
  2. FUROSMIDE [Concomitant]
  3. METOPROLO TARTRATE [Concomitant]
  4. ZOCOR [Concomitant]
  5. AMLODIPINE [Concomitant]
  6. DOXAZOSIN [Concomitant]
  7. SPIRONOLACTONE [Concomitant]
  8. EFFEXOR [Concomitant]
  9. OMEPRAZOLE [Concomitant]
  10. CARAFATE [Concomitant]
  11. NORCO [Concomitant]
  12. MORPHINE [Concomitant]
  13. MULTIVITAMIN FOR MEN [Concomitant]
  14. CALCIUM W/D [Concomitant]
  15. MAGNESIUM, ZINC [Concomitant]
  16. METAMUCIL [Concomitant]

REACTIONS (1)
  - Death [None]
